FAERS Safety Report 21626375 (Version 1)
Quarter: 2022Q4

REPORT INFORMATION
  Report Type: Spontaneous
  Country: US (occurrence: None)
  Receive Date: 20221122
  Receipt Date: 20221122
  Transmission Date: 20230113
  Serious: No
  Sender: FDA-Public Use
  Company Number: US-ROCHE-3129643

PATIENT
  Sex: Female

DRUGS (1)
  1. LUCENTIS [Suspect]
     Active Substance: RANIBIZUMAB
     Indication: Product used for unknown indication
     Dosage: (STRENGTH: 0.5 MG/0.05 ML) ?EXPIRY DATE (28-FEB-2024)
     Route: 065
     Dates: start: 20220628

REACTIONS (6)
  - Lacrimation increased [Unknown]
  - Rhinorrhoea [Unknown]
  - Cough [Unknown]
  - Drainage [Unknown]
  - Ocular hyperaemia [Unknown]
  - Eyelid disorder [Unknown]
